FAERS Safety Report 12743351 (Version 1)
Quarter: 2016Q3

REPORT INFORMATION
  Report Type: Report from Study
  Country: US (occurrence: US)
  Receive Date: 20160914
  Receipt Date: 20160914
  Transmission Date: 20161109
  Serious: Yes (Other)
  Sender: FDA-Public Use
  Company Number: US-BAYER-2016-149847

PATIENT
  Sex: Male

DRUGS (2)
  1. XOFIGO [Suspect]
     Active Substance: RADIUM RA-223 DICHLORIDE
     Indication: PROSTATE CANCER STAGE IV
     Dosage: 4 WEEKS
     Route: 042
     Dates: start: 20160630
  2. XOFIGO [Suspect]
     Active Substance: RADIUM RA-223 DICHLORIDE
     Indication: METASTASES TO BONE
     Dosage: 130.10 UCI, ONCE EVERY 28 DAYS
     Route: 042
     Dates: start: 20160811, end: 20160811

REACTIONS (2)
  - Blood count abnormal [Not Recovered/Not Resolved]
  - White blood cell count decreased [None]
